FAERS Safety Report 8261354-1 (Version None)
Quarter: 2012Q2

REPORT INFORMATION
  Report Type: 
  Country: None (occurrence: None)
  Receive Date: 20120405
  Receipt Date: 20120402
  Transmission Date: 20120825
  Serious: Yes (Hospitalization)
  Sender: FDA-Public Use
  Company Number: FR-PFIZER INC-2012075896

PATIENT
  Age: 73 Year
  Sex: Female

DRUGS (7)
  1. PRIMPERAN TAB [Concomitant]
     Indication: NAUSEA
     Dosage: 1 DF 3 TIMES DAILY AS NEEDED
     Route: 048
     Dates: start: 20110101
  2. XANAX [Suspect]
     Indication: ANXIETY
     Dosage: UNK
     Route: 048
     Dates: start: 20120111
  3. TRIMEPRAZINE TARTRATE [Interacting]
     Indication: INSOMNIA
     Dosage: 15 DROPS, 1X/DAY
     Route: 048
     Dates: start: 20120111, end: 20120224
  4. ACUPAN [Interacting]
     Indication: PAIN
     Dosage: 1 DF 6 TIMES DAILY AS NEEDED
     Route: 048
     Dates: start: 20111201
  5. ACETAMINOPHEN AND TRAMADOL HCL [Interacting]
     Indication: PAIN
     Dosage: UNK
     Route: 048
  6. QUETIAPINE FUMARATE [Interacting]
     Indication: BIPOLAR II DISORDER
     Dosage: 300 MG, 1X/DAY
     Route: 048
     Dates: start: 20120111
  7. TRAMADOL HCL [Concomitant]
     Indication: PAIN
     Dosage: UNK
     Dates: end: 20120201

REACTIONS (10)
  - IRRITABILITY [None]
  - SUSPICIOUSNESS [None]
  - DRUG INTERACTION [None]
  - ANOSOGNOSIA [None]
  - AGITATION [None]
  - BIPOLAR DISORDER [None]
  - LOGORRHOEA [None]
  - FLIGHT OF IDEAS [None]
  - DEPRESSION [None]
  - INSOMNIA [None]
